FAERS Safety Report 6600210-9 (Version None)
Quarter: 2010Q1

REPORT INFORMATION
  Report Type: 
  Country: None (occurrence: None)
  Receive Date: 20100224
  Receipt Date: 20100215
  Transmission Date: 20100710
  Serious: Yes (Other)
  Sender: FDA-Public Use
  Company Number: B0635224A

PATIENT
  Age: 47 Year
  Sex: Female
  Weight: 82 kg

DRUGS (1)
  1. CLAMOXYL [Suspect]
     Indication: TOOTH DISORDER
     Dosage: 750MG PER DAY
     Route: 048
     Dates: start: 20100113, end: 20100113

REACTIONS (2)
  - DYSPNOEA [None]
  - PRURITUS [None]
